FAERS Safety Report 6398554-1 (Version None)
Quarter: 2009Q4

REPORT INFORMATION
  Report Type: 
  Country: None (occurrence: None)
  Receive Date: 20091007
  Receipt Date: 20090930
  Transmission Date: 20100525
  Serious: Yes (Other)
  Sender: FDA-Public Use
  Company Number: ADR35112009

PATIENT
  Age: 74 Year
  Sex: Female

DRUGS (4)
  1. ALENDRONIC ACID (MFR: UNKNOWN) [Suspect]
     Indication: OSTEOPOROSIS
     Dosage: 70 MG ORAL
     Route: 048
     Dates: start: 20090824, end: 20090824
  2. AMIODARONE [Concomitant]
  3. ASPIRIN [Concomitant]
  4. ATENOLOL [Concomitant]

REACTIONS (3)
  - CHEILITIS [None]
  - CHEST DISCOMFORT [None]
  - LIP ULCERATION [None]
